FAERS Safety Report 7682788-X (Version None)
Quarter: 2011Q3

REPORT INFORMATION
  Report Type: 
  Country: None (occurrence: None)
  Receive Date: 20110812
  Receipt Date: 20110812
  Transmission Date: 20111222
  Serious: Yes (Hospitalization)
  Sender: FDA-Public Use
  Company Number: None

PATIENT
  Age: 63 Year
  Sex: Male
  Weight: 79.3 kg

DRUGS (1)
  1. NIACIN [Suspect]
     Indication: HYPERLIPIDAEMIA
     Dosage: 500 MG HS PO
     Route: 048
     Dates: start: 20110413, end: 20110713

REACTIONS (4)
  - CHEST PAIN [None]
  - CHEST DISCOMFORT [None]
  - FLUSHING [None]
  - PALPITATIONS [None]
